FAERS Safety Report 5380987-3 (Version None)
Quarter: 2007Q3

REPORT INFORMATION
  Report Type: 
  Country: None (occurrence: None)
  Receive Date: 20070702
  Receipt Date: 20061201
  Transmission Date: 20080115
  Serious: Yes (Other)
  Sender: FDA-Public Use
  Company Number: SPV1-2006-02112

PATIENT
  Age: 16 Year
  Sex: Male

DRUGS (5)
  1. PENTASA [Suspect]
     Indication: COLITIS ULCERATIVE
     Dosage: 4 G DAILY, ORAL
     Route: 048
     Dates: start: 20060919, end: 20061025
  2. PREDNISONE TAB [Concomitant]
  3. FERROUS SULFATE TAB [Concomitant]
  4. FOLIC AICD (FOLIC ACID) [Concomitant]
  5. OROCAL VITAMIN D (CALCIUM CARBONATE, COLECALCIFEROL) [Concomitant]

REACTIONS (1)
  - THROMBOCYTOPENIA [None]
